FAERS Safety Report 5153056-5 (Version None)
Quarter: 2006Q4

REPORT INFORMATION
  Report Type: 
  Country: None (occurrence: None)
  Receive Date: 20061117
  Receipt Date: 20061106
  Transmission Date: 20070319
  Serious: Yes (Other)
  Sender: FDA-Public Use
  Company Number: PHNU2006DE03630

PATIENT
  Age: 68 Year
  Sex: Female

DRUGS (3)
  1. ZOMETA [Suspect]
     Indication: BREAST CANCER FEMALE
     Dosage: 4 MG, QMO
     Route: 042
     Dates: end: 20040310
  2. BONDRONAT [Suspect]
     Indication: BREAST CANCER FEMALE
     Dosage: 4 MG, TIW
     Route: 042
     Dates: start: 20040421
  3. TAXOTERE [Concomitant]
     Indication: BREAST CANCER FEMALE
     Route: 065
     Dates: start: 20050915, end: 20051201

REACTIONS (7)
  - BIOPSY SITE UNSPECIFIED ABNORMAL [None]
  - BONE DISORDER [None]
  - DENTAL TREATMENT [None]
  - ORAL CAVITY FISTULA [None]
  - OSTEOTOMY [None]
  - SINUSITIS [None]
  - TOOTH EXTRACTION [None]
